FAERS Safety Report 17982201 (Version 1)
Quarter: 2020Q3

REPORT INFORMATION
  Report Type: Spontaneous
  Country: US (occurrence: US)
  Receive Date: 20200703
  Receipt Date: 20200703
  Transmission Date: 20201103
  Serious: Yes (Life-Threatening)
  Sender: FDA-Public Use
  Company Number: None

PATIENT
  Age: 65 Year
  Sex: Male
  Weight: 82 kg

DRUGS (15)
  1. SENNA [Concomitant]
     Active Substance: SENNA LEAF\SENNOSIDES\SENNOSIDES A AND B
     Dates: start: 20200630
  2. PHENYLEPHRINE [Concomitant]
     Active Substance: PHENYLEPHRINE HYDROCHLORIDE
     Dates: start: 20200630
  3. ROCURONIUM [Concomitant]
     Active Substance: ROCURONIUM BROMIDE
     Dates: start: 20200701
  4. MIDAZOLAM. [Concomitant]
     Active Substance: MIDAZOLAM
     Dates: start: 20200701
  5. PROPOFOL. [Concomitant]
     Active Substance: PROPOFOL
     Dates: start: 20200630
  6. REMDESIVIR. [Suspect]
     Active Substance: REMDESIVIR
     Indication: COVID-19
     Route: 042
  7. VASOPRESSIN. [Concomitant]
     Active Substance: VASOPRESSIN
     Dates: start: 20200701
  8. DOCUSATE SENNA [Concomitant]
     Dates: start: 20200630
  9. FAMOTIDINE. [Concomitant]
     Active Substance: FAMOTIDINE
     Dates: start: 20200701
  10. AMIODARONE [Concomitant]
     Active Substance: AMIODARONE
     Dates: start: 20200701
  11. PIPERACILLIN/TAZOBACTAM [Concomitant]
     Active Substance: PIPERACILLIN SODIUM\TAZOBACTAM SODIUM
     Dates: start: 20200701
  12. FENTANYL. [Concomitant]
     Active Substance: FENTANYL
     Dates: start: 20200630
  13. VANCOMYCIN [Concomitant]
     Active Substance: VANCOMYCIN
     Dates: start: 20200701, end: 20200701
  14. NOREPINEPHRINE. [Concomitant]
     Active Substance: NOREPINEPHRINE
     Dates: start: 20200630
  15. INSULIN [Concomitant]
     Active Substance: INSULIN NOS
     Dates: start: 20200630

REACTIONS (7)
  - Dialysis [None]
  - Liver function test increased [None]
  - Sepsis [None]
  - General physical health deterioration [None]
  - Klebsiella infection [None]
  - Acute respiratory distress syndrome [None]
  - Pneumonia bacterial [None]

NARRATIVE: CASE EVENT DATE: 20200703
